FAERS Safety Report 5189374-4 (Version None)
Quarter: 2006Q4

REPORT INFORMATION
  Report Type: 
  Country: None (occurrence: None)
  Receive Date: 20061221
  Receipt Date: 20061211
  Transmission Date: 20070319
  Serious: Yes (Death)
  Sender: FDA-Public Use
  Company Number: NZ-MERCK-0612NZL00027

PATIENT
  Age: 82 Year
  Sex: Male

DRUGS (5)
  1. FOSAMAX [Suspect]
     Indication: OSTEOARTHRITIS
     Route: 048
     Dates: end: 20020301
  2. DONEPEZIL HYDROCHLORIDE [Suspect]
     Indication: DEMENTIA ALZHEIMER'S TYPE
     Route: 048
     Dates: start: 20011025, end: 20020312
  3. ASPIRIN [Suspect]
     Route: 048
     Dates: end: 20020301
  4. HYDROXYUREA [Suspect]
     Indication: PROSTATE CANCER
     Route: 048
     Dates: end: 20020301
  5. ZOCOR [Suspect]
     Indication: HYPERLIPIDAEMIA
     Route: 048
     Dates: end: 20020301

REACTIONS (5)
  - DEATH [None]
  - GASTRIC ULCER [None]
  - GASTRIC ULCER HAEMORRHAGE [None]
  - MYALGIA [None]
  - PNEUMONIA [None]
